FAERS Safety Report 4918975-0 (Version None)
Quarter: 2006Q1

REPORT INFORMATION
  Report Type: 
  Country: None (occurrence: None)
  Receive Date: 20060222
  Receipt Date: 20060117
  Transmission Date: 20060701
  Serious: Yes (Life-Threatening)
  Sender: FDA-Public Use
  Company Number: DE-GLAXOSMITHKLINE-D0048464A

PATIENT
  Age: 7 Month
  Sex: Male

DRUGS (1)
  1. SULTANOL [Suspect]
     Dosage: 2ML THREE TIMES PER DAY
     Route: 055
     Dates: start: 20060116, end: 20060117

REACTIONS (2)
  - ACCIDENTAL OVERDOSE [None]
  - NO ADVERSE EFFECT [None]
